FAERS Safety Report 9991554 (Version 2)
Quarter: 2014Q2

REPORT INFORMATION
  Report Type: Spontaneous
  Country: US (occurrence: US)
  Receive Date: 20140310
  Receipt Date: 20140418
  Transmission Date: 20141212
  Serious: Yes (Other)
  Sender: FDA-Public Use
  Company Number: US-ELI_LILLY_AND_COMPANY-US201402009546

PATIENT
  Age: 67 Year
  Sex: Female

DRUGS (7)
  1. HUMULIN 30% REGULAR, 70% NPH [Suspect]
     Indication: TYPE 2 DIABETES MELLITUS
     Dosage: 20 U, BID
     Route: 065
  2. GLUCOPHAGE [Concomitant]
     Dosage: 2500 MG, QD
  3. CALCIUM [Concomitant]
     Dosage: UNK, QD
  4. FISH OIL [Concomitant]
     Dosage: UNK, QD
  5. VITAMIN D                          /00107901/ [Concomitant]
     Dosage: UNK, QD
  6. VITAMIN E                          /00110501/ [Concomitant]
     Dosage: UNK, QD
  7. IRON [Concomitant]
     Dosage: UNK, QD

REACTIONS (1)
  - Hyperglycaemia [Recovered/Resolved]
